FAERS Safety Report 22776121 (Version 3)
Quarter: 2023Q4

REPORT INFORMATION
  Report Type: Spontaneous
  Country: US (occurrence: US)
  Receive Date: 20230802
  Receipt Date: 20231003
  Transmission Date: 20240110
  Serious: No
  Sender: FDA-Public Use
  Company Number: US-SA-SAC20230728000536

PATIENT
  Age: 57 Year
  Sex: Female

DRUGS (1)
  1. DUPIXENT [Suspect]
     Active Substance: DUPILUMAB
     Indication: Dermatitis atopic
     Dosage: 300 MG; FREQUENCY AS OTHER
     Route: 058
     Dates: start: 202305

REACTIONS (6)
  - Dry skin [Unknown]
  - Rash erythematous [Unknown]
  - Skin exfoliation [Unknown]
  - Exfoliative rash [Unknown]
  - Skin discolouration [Unknown]
  - Eczema [Unknown]

NARRATIVE: CASE EVENT DATE: 20230101
